FAERS Safety Report 4481686-2 (Version None)
Quarter: 2004Q4

REPORT INFORMATION
  Report Type: 
  Country: None (occurrence: None)
  Receive Date: 20041021
  Receipt Date: 20041014
  Transmission Date: 20050328
  Serious: Yes (Other)
  Sender: FDA-Public Use
  Company Number: GB-MERCK-0410GBR00167

PATIENT
  Age: 83 Year
  Sex: Female

DRUGS (7)
  1. VIOXX [Suspect]
     Indication: CHONDROCALCINOSIS PYROPHOSPHATE
     Route: 048
     Dates: start: 20040731, end: 20041001
  2. ASPIRIN [Concomitant]
     Indication: MYOCARDIAL ISCHAEMIA
     Route: 048
     Dates: start: 20000101
  3. HEPARINOID AND SALICYLIC ACID [Concomitant]
     Indication: ARTHRITIS
     Route: 061
     Dates: start: 20000101
  4. RAMIPRIL [Concomitant]
     Indication: DYSPNOEA EXERTIONAL
     Route: 048
     Dates: start: 20040630
  5. RANITIDINE [Concomitant]
     Indication: DYSPEPSIA
     Route: 048
     Dates: start: 19920101
  6. ACETAMINOPHEN AND PROPOXYPHENE HYDROCHLORIDE [Concomitant]
     Indication: PAIN
     Route: 048
     Dates: start: 19960618
  7. PRAVASTATIN SODIUM [Concomitant]
     Indication: HYPERCHOLESTEROLAEMIA
     Route: 048
     Dates: start: 20000101

REACTIONS (1)
  - ANGINA PECTORIS [None]
